FAERS Safety Report 9012034 (Version 3)
Quarter: 2013Q1

REPORT INFORMATION
  Report Type: Spontaneous
  Country: BR (occurrence: None)
  Receive Date: 20121228
  Receipt Date: 20130320
  Transmission Date: 20140127
  Serious: Yes (Hospitalization)
  Sender: FDA-Public Use
  Company Number: 2012-8381

PATIENT
  Age: 40 Year
  Sex: Female

DRUGS (4)
  1. DYSPORT [Suspect]
     Indication: SKIN WRINKLING
     Dosage: 39 UNITS (39 UNITS, 1 IN 1 CYCLE(S), INTRAMUSCU7LAR
     Route: 030
     Dates: start: 20121204, end: 20121204
  2. DYSPORT [Suspect]
     Indication: SKIN WRINKLING
     Dosage: 39 UNITS (39 UNITS, 1 IN 1 CYCLE(S), INTRAMUSCU7LAR
     Route: 030
     Dates: start: 20121204, end: 20121204
  3. DYSPORT [Suspect]
     Dosage: 39 UNITS (39 UNITS, 1 IN 1 CYCLE(S), INTRAMUSCU7LAR
     Route: 030
     Dates: start: 20121204, end: 20121204
  4. DYSPORT [Suspect]
     Dosage: 39 UNITS (39 UNITS, 1 IN 1 CYCLE(S), INTRAMUSCU7LAR
     Route: 030
     Dates: start: 20121204, end: 20121204

REACTIONS (3)
  - VIIth nerve paralysis [None]
  - Product reconstitution issue [None]
  - Treatment noncompliance [None]
